FAERS Safety Report 7490237-X (Version None)
Quarter: 2011Q2

REPORT INFORMATION
  Report Type: 
  Country: None (occurrence: None)
  Receive Date: 20110519
  Receipt Date: 20110513
  Transmission Date: 20111010
  Serious: No
  Sender: FDA-Public Use
  Company Number: US-PFIZER INC-2011086127

PATIENT
  Sex: Female

DRUGS (3)
  1. GABAPENTIN [Suspect]
     Dosage: UNK
     Dates: start: 20100901
  2. LYRICA [Suspect]
     Indication: BACK PAIN
     Dosage: UNK
     Dates: start: 20100901
  3. GABAPENTIN [Suspect]
     Indication: BACK PAIN
     Dosage: UNK
     Dates: start: 20100701

REACTIONS (1)
  - NAUSEA [None]
